FAERS Safety Report 5749199-5 (Version None)
Quarter: 2008Q2

REPORT INFORMATION
  Report Type: 
  Country: None (occurrence: None)
  Receive Date: 20080521
  Receipt Date: 20080521
  Transmission Date: 20081010
  Serious: Yes (Life-Threatening, Hospitalization)
  Sender: FDA-Public Use
  Company Number: None

PATIENT
  Age: 40 Year
  Sex: Female
  Weight: 54.4316 kg

DRUGS (1)
  1. MORPHINE [Suspect]
     Indication: BACK PAIN
     Dosage: 2MG PRN IV BOLUS
     Route: 040
     Dates: start: 20080515, end: 20080515

REACTIONS (9)
  - ANAPHYLACTOID REACTION [None]
  - BACK PAIN [None]
  - CHILLS [None]
  - FLANK PAIN [None]
  - INFLUENZA [None]
  - NASOPHARYNGITIS [None]
  - NO REACTION ON PREVIOUS EXPOSURE TO DRUG [None]
  - PAIN [None]
  - PYREXIA [None]
